FAERS Safety Report 5656273-0 (Version None)
Quarter: 2008Q1

REPORT INFORMATION
  Report Type: 
  Country: None (occurrence: None)
  Receive Date: 20080309
  Receipt Date: 20071011
  Transmission Date: 20080703
  Serious: No
  Sender: FDA-Public Use
  Company Number: US-BAYER-200712147BCC

PATIENT
  Age: 68 Year
  Sex: Male
  Weight: 77 kg

DRUGS (5)
  1. ALEVE [Suspect]
     Indication: ARTHRALGIA
     Dosage: UNIT DOSE: 220 MG
     Route: 048
     Dates: start: 20070601, end: 20070704
  2. ALEVE [Suspect]
     Route: 048
     Dates: start: 20070101
  3. INSULIN [Concomitant]
  4. SINGULAIR [Concomitant]
  5. SYNTHROID [Concomitant]

REACTIONS (2)
  - BLOOD GLUCOSE DECREASED [None]
  - BLOOD GLUCOSE INCREASED [None]
